APPROVED DRUG PRODUCT: DESIPRAMINE HYDROCHLORIDE
Active Ingredient: DESIPRAMINE HYDROCHLORIDE
Strength: 100MG
Dosage Form/Route: TABLET;ORAL
Application: A071803 | Product #001
Applicant: ANI PHARMACEUTICALS INC
Approved: May 29, 1997 | RLD: No | RS: No | Type: DISCN